FAERS Safety Report 20154116 (Version 1)
Quarter: 2021Q4

REPORT INFORMATION
  Report Type: Spontaneous
  Country: US (occurrence: US)
  Receive Date: 20211207
  Receipt Date: 20211207
  Transmission Date: 20220303
  Serious: No
  Sender: FDA-Public Use
  Company Number: US-AMGEN-USASP2021193216

PATIENT
  Age: 78 Year
  Sex: Female

DRUGS (5)
  1. OTEZLA [Suspect]
     Active Substance: APREMILAST
     Indication: Psoriasis
     Dosage: 30 MILLIGRAM, QD
     Route: 048
  2. FISH OIL [Concomitant]
     Active Substance: FISH OIL
     Dosage: UNK
  3. MAGNESIUM [Concomitant]
     Active Substance: MAGNESIUM
     Dosage: UNK
  4. TYLENOL [Concomitant]
     Active Substance: ACETAMINOPHEN
     Dosage: UNK
  5. CHOLECALCIFEROL [Concomitant]
     Active Substance: CHOLECALCIFEROL
     Dosage: UNK

REACTIONS (2)
  - Product dose omission issue [Unknown]
  - Off label use [Unknown]

NARRATIVE: CASE EVENT DATE: 20211202
